FAERS Safety Report 4445397-1 (Version None)
Quarter: 2004Q3

REPORT INFORMATION
  Report Type: 
  Country: None (occurrence: None)
  Receive Date: 20040729
  Receipt Date: 20040520
  Transmission Date: 20050211
  Serious: Yes (Hospitalization)
  Sender: FDA-Public Use
  Company Number: 2004UW10567

PATIENT
  Age: 80 Year
  Sex: Male

DRUGS (4)
  1. ELAVIL [Suspect]
     Indication: SEDATION
  2. LIPITOR [Suspect]
     Indication: HYPERCHOLESTEROLAEMIA
     Dosage: 10 MG QD PO
     Route: 048
  3. ASPIRIN [Concomitant]
  4. RAMIPRIL [Concomitant]

REACTIONS (4)
  - BILIRUBIN CONJUGATED INCREASED [None]
  - LIVER FUNCTION TEST ABNORMAL [None]
  - NAUSEA [None]
  - VOMITING [None]
